FAERS Safety Report 8073133-9 (Version None)
Quarter: 2012Q1

REPORT INFORMATION
  Report Type: 
  Country: None (occurrence: None)
  Receive Date: 20120123
  Receipt Date: 20120123
  Transmission Date: 20120608
  Serious: No
  Sender: FDA-Public Use
  Company Number: None

PATIENT
  Sex: Male
  Weight: 87.5 kg

DRUGS (1)
  1. SENSIPAR [Suspect]
     Indication: RENAL FAILURE CHRONIC
     Dosage: 30MG QHS PO
     Route: 048
     Dates: start: 20111018, end: 20120118

REACTIONS (2)
  - CONSTIPATION [None]
  - ABDOMINAL PAIN [None]
